FAERS Safety Report 20719910 (Version 2)
Quarter: 2022Q2

REPORT INFORMATION
  Report Type: Report from Study
  Country: CA (occurrence: CA)
  Receive Date: 20220418
  Receipt Date: 20220512
  Transmission Date: 20220721
  Serious: Yes (Hospitalization, Other)
  Sender: FDA-Public Use
  Company Number: CA-GLAXOSMITHKLINE-CA2020GSK109140

PATIENT
  Age: 71 Year
  Sex: Female
  Weight: 83.6 kg

DRUGS (13)
  1. DOSTARLIMAB [Suspect]
     Active Substance: DOSTARLIMAB
     Indication: Endometrial cancer
     Dosage: 500 MG
     Dates: start: 20200331, end: 20200331
  2. DOSTARLIMAB [Suspect]
     Active Substance: DOSTARLIMAB
     Dosage: 500 MG
     Dates: start: 20200602, end: 20200602
  3. CARBOPLATIN [Suspect]
     Active Substance: CARBOPLATIN
     Indication: Endometrial cancer
     Dosage: 5 AUC
     Route: 042
     Dates: start: 20200331, end: 20200331
  4. CARBOPLATIN [Suspect]
     Active Substance: CARBOPLATIN
     Dosage: 464 AUC
     Route: 042
     Dates: start: 20200602, end: 20200602
  5. CARBOPLATIN [Suspect]
     Active Substance: CARBOPLATIN
     Dosage: 464 AUC
     Route: 042
     Dates: start: 20200721, end: 20200721
  6. PACLITAXEL [Suspect]
     Active Substance: PACLITAXEL
     Indication: Endometrial cancer
     Dosage: 175 MG/M2
     Route: 042
     Dates: start: 20200331, end: 20200331
  7. PACLITAXEL [Suspect]
     Active Substance: PACLITAXEL
     Dosage: 175 MG/M2
     Route: 042
     Dates: start: 20200602, end: 20200602
  8. PACLITAXEL [Suspect]
     Active Substance: PACLITAXEL
     Dosage: 175 MG/M2
     Route: 042
     Dates: start: 20200721, end: 20200721
  9. HYDROMORPHONE [Concomitant]
     Active Substance: HYDROMORPHONE
     Indication: Myalgia
     Dosage: 2 MG, PRN
     Route: 048
     Dates: start: 20200605, end: 20200605
  10. HYDROMORPHONE [Concomitant]
     Active Substance: HYDROMORPHONE
     Indication: Abdominal pain
  11. MACROBID [Concomitant]
     Active Substance: NITROFURANTOIN\NITROFURANTOIN MONOHYDRATE
     Indication: Urinary tract infection
     Dosage: 100 MG, BID
     Route: 048
     Dates: start: 20200612, end: 20200619
  12. CIPROFLOXACIN [Concomitant]
     Active Substance: CIPROFLOXACIN
     Indication: Pollakiuria
     Dosage: 500 MG, BID
     Route: 048
     Dates: start: 20200623, end: 20200625
  13. CIPROFLOXACIN [Concomitant]
     Active Substance: CIPROFLOXACIN
     Indication: Abdominal pain lower

REACTIONS (3)
  - Dyspnoea [Recovered/Resolved]
  - Balance disorder [Recovered/Resolved]
  - Pulmonary embolism [Recovered/Resolved]

NARRATIVE: CASE EVENT DATE: 20200622
